FAERS Safety Report 21337398 (Version 1)
Quarter: 2022Q3

REPORT INFORMATION
  Report Type: Spontaneous
  Country: US (occurrence: US)
  Receive Date: 20220915
  Receipt Date: 20220915
  Transmission Date: 20221027
  Serious: Yes (Hospitalization, Other)
  Sender: FDA-Public Use
  Company Number: US-PFIZER INC-PV202200056673

PATIENT
  Age: 4 Decade
  Sex: Female

DRUGS (3)
  1. METHIMAZOLE [Suspect]
     Active Substance: METHIMAZOLE
     Indication: Basedow^s disease
     Dosage: 10 MG, DAILY
  2. METHIMAZOLE [Suspect]
     Active Substance: METHIMAZOLE
     Dosage: 15 MG, DAILY (0.21 MG/ KG DOSE)
  3. ATENOLOL [Concomitant]
     Active Substance: ATENOLOL
     Indication: Basedow^s disease
     Dosage: 25 MG, 2X/DAY

REACTIONS (3)
  - Agranulocytosis [Recovered/Resolved]
  - Febrile neutropenia [Recovered/Resolved]
  - Jaundice cholestatic [Recovered/Resolved]
